FAERS Safety Report 20307173 (Version 1)
Quarter: 2022Q1

REPORT INFORMATION
  Report Type: Other
  Country: CA (occurrence: CA)
  Receive Date: 20220107
  Receipt Date: 20220107
  Transmission Date: 20220423
  Serious: Yes (Other)
  Sender: FDA-Public Use
  Company Number: CA-CELLTRION INC.-2021CA017967

PATIENT

DRUGS (24)
  1. RITUXIMAB [Suspect]
     Active Substance: RITUXIMAB
     Indication: Rheumatoid arthritis
     Dosage: 1000.0 MILLIGRAM, 1 EVERY 15 DAYS
     Route: 042
  2. AMLODIPINE [Concomitant]
     Active Substance: AMLODIPINE BESYLATE
     Route: 065
  3. BENADRYL [Concomitant]
     Active Substance: DIPHENHYDRAMINE HYDROCHLORIDE
     Dosage: 50.0 MILLIGRAM
     Route: 048
  4. CALCIUM [Concomitant]
     Active Substance: CALCIUM
     Route: 065
  5. DIGOXIN [Concomitant]
     Active Substance: DIGOXIN
  6. ELIQUIS [Concomitant]
     Active Substance: APIXABAN
  7. ERYTHROMYCIN [Concomitant]
     Active Substance: ERYTHROMYCIN
  8. FUROSEMIDE [Concomitant]
     Active Substance: FUROSEMIDE
     Route: 065
  9. HYDROXYCHLOROQUINE [Concomitant]
     Active Substance: HYDROXYCHLOROQUINE
  10. INSULIN NOS [Concomitant]
     Active Substance: INSULIN NOS
     Dosage: DOSAGE FORM: GLOBULES ORAL
  11. LANTUS [Concomitant]
     Active Substance: INSULIN GLARGINE
  12. LASIX [Concomitant]
     Active Substance: FUROSEMIDE
  13. LYRICA [Concomitant]
     Active Substance: PREGABALIN
  14. METHYLPREDNISOLONE SODIUM SUCCINATE [Concomitant]
     Active Substance: METHYLPREDNISOLONE SODIUM SUCCINATE
     Indication: Premedication
     Dosage: 100.0 MILLIGRAM
     Route: 042
  15. METOPROLOL [Concomitant]
     Active Substance: METOPROLOL
  16. OXYGEN [Concomitant]
     Active Substance: OXYGEN
  17. PANTOPRAZOLE [Concomitant]
     Active Substance: PANTOPRAZOLE
  18. SPIRONOLACTONE [Concomitant]
     Active Substance: SPIRONOLACTONE
  19. TIOTROPIUM BROMIDE MONOHYDRATE [Concomitant]
     Active Substance: TIOTROPIUM BROMIDE MONOHYDRATE
  20. TOLOXIN [DIGOXIN] [Concomitant]
  21. TRAMADOL [Concomitant]
     Active Substance: TRAMADOL
  22. TYLENOL [Concomitant]
     Active Substance: ACETAMINOPHEN
     Indication: Premedication
     Dosage: 650.0 MILLIGRAM
     Route: 048
  23. ZAROXOLYN [Concomitant]
     Active Substance: METOLAZONE
  24. ZOPICLONE [Concomitant]
     Active Substance: ZOPICLONE

REACTIONS (2)
  - Renal failure [Unknown]
  - Off label use [Unknown]
